APPROVED DRUG PRODUCT: FLUOCINOLONE ACETONIDE
Active Ingredient: FLUOCINOLONE ACETONIDE
Strength: 0.01%
Dosage Form/Route: SOLUTION;TOPICAL
Application: A088449 | Product #001
Applicant: PHARMAFAIR INC
Approved: Feb 8, 1984 | RLD: No | RS: No | Type: DISCN